FAERS Safety Report 23281916 (Version 1)
Quarter: 2023Q4

REPORT INFORMATION
  Report Type: Report from Study
  Country: KR (occurrence: KR)
  Receive Date: 20231211
  Receipt Date: 20231211
  Transmission Date: 20240109
  Serious: Yes (Hospitalization, Other)
  Sender: FDA-Public Use
  Company Number: KR-MYLANLABS-2023M1130626

PATIENT
  Age: 67 Year
  Sex: Male
  Weight: 69 kg

DRUGS (15)
  1. ATORVASTATIN [Suspect]
     Active Substance: ATORVASTATIN
     Indication: Hyperlipidaemia
     Dosage: 20 MILLIGRAM, QD
     Route: 048
     Dates: start: 20180927
  2. XALATAN [Concomitant]
     Active Substance: LATANOPROST
     Indication: Glaucoma
     Dosage: 1 GTT DROPS, QD
     Route: 047
     Dates: start: 20060516
  3. CILOSTAZOL [Concomitant]
     Active Substance: CILOSTAZOL
     Indication: Cerebral infarction
     Dosage: 200 MILLIGRAM, QD
     Route: 048
     Dates: start: 20180921
  4. FOLIC ACID [Concomitant]
     Active Substance: FOLIC ACID
     Indication: Hypovitaminosis
     Dosage: 1 MILLIGRAM, QD
     Route: 048
     Dates: start: 20180920
  5. ASPIRIN [Concomitant]
     Active Substance: ASPIRIN
     Indication: Cardiovascular disorder
     Dosage: 100 MILLIGRAM, QD
     Route: 048
     Dates: start: 20050302
  6. GLICLAZIDE [Concomitant]
     Active Substance: GLICLAZIDE
     Indication: Type 2 diabetes mellitus
     Dosage: 60 MILLIGRAM, QD
     Route: 048
     Dates: start: 20110921
  7. LINAGLIPTIN [Concomitant]
     Active Substance: LINAGLIPTIN
     Indication: Type 2 diabetes mellitus
     Dosage: 5 MILLIGRAM, QD
     Route: 048
     Dates: start: 20151111
  8. OMEGA-3-ACID ETHYL ESTER [Concomitant]
     Active Substance: OMEGA-3-ACID ETHYL ESTERS
     Indication: Hyperlipidaemia
     Dosage: 1000 MILLIGRAM, BID
     Route: 048
     Dates: start: 20170125
  9. TELMISARTAN [Concomitant]
     Active Substance: TELMISARTAN
     Indication: Essential hypertension
     Dosage: 40 MILLIGRAM, QD
     Route: 048
     Dates: start: 20100428
  10. BISOPROLOL FUMARATE [Concomitant]
     Active Substance: BISOPROLOL FUMARATE
     Indication: Essential hypertension
     Dosage: 5 MILLIGRAM, QD
     Route: 048
     Dates: start: 20170726
  11. DOXAZOSIN MESYLATE [Concomitant]
     Active Substance: DOXAZOSIN MESYLATE
     Indication: Hypertensive nephropathy
     Dosage: 4 MILLIGRAM, BID
     Route: 048
     Dates: start: 20161026
  12. HYDROCHLOROTHIAZIDE [Concomitant]
     Active Substance: HYDROCHLOROTHIAZIDE
     Indication: Essential hypertension
     Dosage: 25 MILLIGRAM, QD
     Route: 048
     Dates: start: 20050302
  13. TORSEMIDE [Concomitant]
     Active Substance: TORSEMIDE
     Indication: Hypertensive nephropathy
     Dosage: 10 MILLIGRAM, QD
     Route: 048
     Dates: start: 20170721
  14. FEBUXOSTAT [Concomitant]
     Active Substance: FEBUXOSTAT
     Indication: Gout
     Dosage: 40 MILLIGRAM, QD
     Route: 048
     Dates: start: 20170125
  15. CALCITRIOL [Concomitant]
     Active Substance: CALCITRIOL
     Indication: Hypovitaminosis
     Dosage: QD
     Route: 048
     Dates: start: 20180117

REACTIONS (1)
  - Nephritis [Recovered/Resolved]

NARRATIVE: CASE EVENT DATE: 20181003
